FAERS Safety Report 12094977 (Version 7)
Quarter: 2020Q1

REPORT INFORMATION
  Report Type: Report from Study
  Country: BR (occurrence: BR)
  Receive Date: 20160219
  Receipt Date: 20200210
  Transmission Date: 20200409
  Serious: Yes (Hospitalization, Other)
  Sender: FDA-Public Use
  Company Number: BR-BIOGEN-2016BI00189569

PATIENT
  Age: 59 Year
  Sex: Female

DRUGS (8)
  1. CYMBALTA (DUOLOXETINE) [Concomitant]
     Indication: PRODUCT USED FOR UNKNOWN INDICATION
     Route: 065
  2. RIVOTRIL [Concomitant]
     Active Substance: CLONAZEPAM
     Indication: PRODUCT USED FOR UNKNOWN INDICATION
     Route: 065
  3. LOSARTAN. [Concomitant]
     Active Substance: LOSARTAN
     Indication: PRODUCT USED FOR UNKNOWN INDICATION
     Route: 065
  4. ACETYLSALICYLIC ACID [Concomitant]
     Active Substance: ASPIRIN
     Indication: PRODUCT USED FOR UNKNOWN INDICATION
     Route: 065
  5. TYSABRI [Suspect]
     Active Substance: NATALIZUMAB
     Indication: MULTIPLE SCLEROSIS
     Route: 042
     Dates: start: 20150901
  6. MANDITAN (AMANTADINE) [Concomitant]
     Indication: PRODUCT USED FOR UNKNOWN INDICATION
     Route: 065
  7. CLOPIN (CLOPIDOGREL) [Concomitant]
     Indication: BLOOD DISORDER
     Route: 065
  8. CLONAZEPAM. [Concomitant]
     Active Substance: CLONAZEPAM
     Indication: INSOMNIA
     Route: 065

REACTIONS (26)
  - Speech disorder [Recovered/Resolved]
  - Stress [Not Recovered/Not Resolved]
  - Cholelithiasis [Recovered/Resolved]
  - Blister [Recovered/Resolved]
  - Facial pain [Unknown]
  - Hypothermia [Recovered/Resolved]
  - Poor venous access [Not Recovered/Not Resolved]
  - Post procedural complication [Unknown]
  - Multiple sclerosis relapse [Recovered/Resolved]
  - Gait disturbance [Recovered/Resolved]
  - Urinary tract infection [Not Recovered/Not Resolved]
  - Nervousness [Not Recovered/Not Resolved]
  - Urinary tract disorder [Unknown]
  - Blood pressure decreased [Recovered/Resolved]
  - Constipation [Recovered/Resolved]
  - Fall [Recovered/Resolved]
  - Headache [Not Recovered/Not Resolved]
  - Pain in extremity [Unknown]
  - Memory impairment [Not Recovered/Not Resolved]
  - Gastrointestinal disorder [Unknown]
  - Erythema [Recovered/Resolved]
  - Carotid artery aneurysm [Not Recovered/Not Resolved]
  - Sedation [Unknown]
  - Pain [Unknown]
  - Incorrect drug administration rate [Unknown]
  - Anxiety [Not Recovered/Not Resolved]

NARRATIVE: CASE EVENT DATE: 20150910
